FAERS Safety Report 4396606-9 (Version None)
Quarter: 2004Q3

REPORT INFORMATION
  Report Type: 
  Country: None (occurrence: None)
  Receive Date: 20040713
  Receipt Date: 20040713
  Transmission Date: 20050211
  Serious: Yes (Hospitalization)
  Sender: FDA-Public Use
  Company Number: None

PATIENT
  Age: 73 Year
  Sex: Female
  Weight: 53.3 kg

DRUGS (2)
  1. CISPLATIN [Suspect]
     Indication: TONGUE NEOPLASM MALIGNANT STAGE UNSPECIFIED
     Dosage: 156 MG DAY 22 INTRAMUSCULAR
     Route: 030
     Dates: start: 20040526, end: 20040526
  2. RADIATION THERAPY [Concomitant]

REACTIONS (1)
  - FEBRILE NEUTROPENIA [None]
